FAERS Safety Report 5615146-X (Version None)
Quarter: 2008Q1

REPORT INFORMATION
  Report Type: 
  Country: None (occurrence: None)
  Receive Date: 20080206
  Receipt Date: 20071031
  Transmission Date: 20080703
  Serious: No
  Sender: FDA-Public Use
  Company Number: A0668931A

PATIENT
  Age: 56 Year
  Sex: Male

DRUGS (6)
  1. ARIXTRA [Suspect]
     Dosage: 1INJ PER DAY
     Route: 058
     Dates: start: 20070501
  2. DIGOXIN [Concomitant]
  3. REGLAN [Concomitant]
  4. ZOFRAN [Concomitant]
  5. HYDROMORPHONE HCL [Concomitant]
  6. CHEMOTHERAPY [Concomitant]

REACTIONS (3)
  - APPLICATION SITE DRYNESS [None]
  - INJECTION SITE PAIN [None]
  - PHARMACEUTICAL PRODUCT COMPLAINT [None]
